FAERS Safety Report 7774745-X (Version None)
Quarter: 2011Q3

REPORT INFORMATION
  Report Type: 
  Country: None (occurrence: None)
  Receive Date: 20110923
  Receipt Date: 20110921
  Transmission Date: 20111222
  Serious: Yes (Death, Other)
  Sender: FDA-Public Use
  Company Number: ZA-ROCHE-799819

PATIENT
  Sex: Male

DRUGS (2)
  1. RIBAVIRIN [Suspect]
     Route: 065
  2. PEGINTERFERON ALFA-2A [Suspect]
     Route: 065
     Dates: start: 20101020

REACTIONS (5)
  - TUBERCULOSIS [None]
  - WEIGHT DECREASED [None]
  - PLATELET COUNT DECREASED [None]
  - NEUTROPENIA [None]
  - DEATH [None]
